FAERS Safety Report 8442753-1 (Version None)
Quarter: 2012Q2

REPORT INFORMATION
  Report Type: 
  Country: None (occurrence: None)
  Receive Date: 20120615
  Receipt Date: 20120608
  Transmission Date: 20120825
  Serious: Yes (Hospitalization)
  Sender: FDA-Public Use
  Company Number: US-US-EMD SERONO, INC.-7020782

PATIENT
  Sex: Female
  Weight: 108 kg

DRUGS (1)
  1. REBIF [Suspect]
     Indication: MULTIPLE SCLEROSIS
     Route: 058
     Dates: start: 20100629, end: 20100924

REACTIONS (3)
  - CONSTIPATION [None]
  - ABDOMINAL HERNIA [None]
  - POST PROCEDURAL COMPLICATION [None]
